FAERS Safety Report 7360996-5 (Version None)
Quarter: 2011Q1

REPORT INFORMATION
  Report Type: 
  Country: None (occurrence: None)
  Receive Date: 20110315
  Receipt Date: 20110315
  Transmission Date: 20110831
  Serious: Yes (Life-Threatening, Hospitalization)
  Sender: FDA-Public Use
  Company Number: None

PATIENT
  Age: 17 Year
  Sex: Male
  Weight: 56.6996 kg

DRUGS (1)
  1. ADDERALL XR 20 [Suspect]
     Indication: ATTENTION DEFICIT/HYPERACTIVITY DISORDER
     Dosage: 1 PILL MORNING MOUTH
     Route: 048
     Dates: start: 20110218, end: 20110222

REACTIONS (5)
  - HEMIPARESIS [None]
  - PALPITATIONS [None]
  - ANXIETY [None]
  - HYPOAESTHESIA [None]
  - LETHARGY [None]
